FAERS Safety Report 11276948 (Version 2)
Quarter: 2015Q3

REPORT INFORMATION
  Report Type: Report from Study
  Country: DE (occurrence: DE)
  Receive Date: 20150716
  Receipt Date: 20150722
  Transmission Date: 20151125
  Serious: Yes (Death, Life-Threatening, Hospitalization)
  Sender: FDA-Public Use
  Company Number: DE-TEVA-577477ISR

PATIENT
  Age: 37 Year
  Sex: Male
  Weight: 64.1 kg

DRUGS (47)
  1. PREDNISOLUT I.V. [Concomitant]
     Dosage: 20 MILLIGRAM DAILY;
     Route: 042
     Dates: start: 20150418
  2. GLUKOSE 40 % [Concomitant]
     Dosage: 500 ML DAILY;
     Route: 065
     Dates: start: 20150423
  3. TREOSULFAN [Suspect]
     Active Substance: TREOSULFAN
     Dosage: 20.2 GRAM DAILY;
     Route: 065
     Dates: start: 20150320, end: 20150322
  4. LASIX PERFUSOR [Concomitant]
     Route: 065
     Dates: start: 20150421, end: 20150427
  5. BELOC ZOK MITE [Concomitant]
     Active Substance: METOPROLOL SUCCINATE
     Dosage: 2 DOSAGE FORMS DAILY;
     Route: 065
  6. SANDIMMUN I.V. [Concomitant]
     Dosage: 120 MILLIGRAM DAILY;
     Route: 042
     Dates: start: 20150422, end: 20150423
  7. AMPHO MORONAL SUSP [Concomitant]
     Dosage: 20 ML DAILY;
     Route: 065
  8. VOMEX [Concomitant]
     Active Substance: DIMENHYDRINATE
     Dosage: 186 MILLIGRAM DAILY;
     Route: 065
  9. DIPIDOLOR 7.5 MG [Concomitant]
     Dosage: 7.5 MILLIGRAM DAILY; WHEN PAIN (4 TIMES A DAY)
     Route: 065
     Dates: end: 20150422
  10. PREDNISOLUT I.V. [Concomitant]
     Dosage: 40 MILLIGRAM DAILY;
     Route: 042
     Dates: start: 20150418
  11. ANTRA 40 PRO INFUSIONE [Concomitant]
     Dosage: 1 DOSAGE FORMS DAILY;
     Route: 065
  12. SANDIMMUN I.V. [Concomitant]
     Dosage: 70 MILLIGRAM DAILY; LAST DOSE AFTER CONSULTATION 25-APR
     Route: 042
     Dates: start: 20150426, end: 20150427
  13. AMINOSTERIL NEPHRO 10% [Concomitant]
     Dosage: 500 ML DAILY;
     Route: 065
  14. AQUAPHOR [Concomitant]
     Active Substance: PETROLATUM
     Dosage: 20 MILLIGRAM DAILY;
     Route: 065
     Dates: start: 20150426
  15. TAVOR 1.0 MG TABLETTEN [Concomitant]
     Dosage: 1 MILLIGRAM DAILY; WHEN NEEDED 3 TIMES A DAY
     Route: 065
  16. TEMGESIC PERFUSOR [Concomitant]
     Dosage: 2 DOSAGE FORMS DAILY; WITH STRONG PAINS 2ML/H
     Route: 065
     Dates: end: 20150420
  17. LASIX PERFUSOR [Concomitant]
     Dosage: 240 MILLIGRAM DAILY;
     Dates: start: 20150421, end: 20150427
  18. URSOFALK [Concomitant]
     Active Substance: URSODIOL
     Dosage: 750 MILLIGRAM DAILY; JUICE
     Route: 065
  19. CELLCEPT I.V. [Concomitant]
     Dosage: 2000 MILLIGRAM DAILY;
     Route: 042
  20. SANDIMMUN I.V. [Concomitant]
     Dosage: 80 MILLIGRAM DAILY; LAST DOSE AFTER CONSULTATION 23-APR
     Route: 042
     Dates: start: 20150424, end: 20150425
  21. GLUKOSE 20 % [Concomitant]
     Dosage: 500 ML DAILY;
     Route: 065
     Dates: start: 20150418, end: 20150420
  22. SCHLEIMKAUTPFLEGE/AROMATHERAPIE [Concomitant]
     Dosage: 3 DOSAGE FORMS DAILY;
     Route: 065
  23. TOREM [Concomitant]
     Active Substance: TORSEMIDE
     Dosage: 10 MILLIGRAM DAILY;
     Route: 065
     Dates: start: 20150423
  24. FLUDARABINE [Suspect]
     Active Substance: FLUDARABINE PHOSPHATE
     Dosage: 50 MILLIGRAM DAILY;
     Route: 065
     Dates: start: 20150317, end: 20150319
  25. LASIX PERFUSOR [Concomitant]
     Route: 065
     Dates: end: 20150418
  26. PREDNISOLUT I.V. [Concomitant]
     Dosage: 30 MILLIGRAM DAILY;
     Route: 042
     Dates: end: 20150417
  27. SANDIMMUN I.V. [Concomitant]
     Dosage: 100 MILLIGRAM DAILY;
     Route: 042
     Dates: end: 20150416
  28. GLUKOSE 40 % [Concomitant]
     Dosage: 500 ML DAILY;
     Route: 065
     Dates: end: 20150417
  29. HUMANALBUMIN 20% [Concomitant]
     Dosage: 2 GRAM DAILY; 20 G/D I.V.
     Route: 042
  30. ZOVIRAX I.V. [Concomitant]
     Dosage: 500 MILLIGRAM DAILY;
     Route: 042
  31. ACC INJEKT [Concomitant]
     Dosage: 300 MILLIGRAM DAILY;
     Route: 065
     Dates: start: 20150426
  32. THIOTEPA. [Suspect]
     Active Substance: THIOTEPA
     Dosage: 290 MILLIGRAM DAILY;
     Route: 065
     Dates: start: 20150317, end: 20150319
  33. LASIX PERFUSOR [Concomitant]
     Dosage: 120 MILLIGRAM DAILY;
     Dates: start: 20150428
  34. DELIX PLUS 5 MG [Concomitant]
     Dosage: 5 MILLIGRAM DAILY;
     Route: 065
  35. MERONEM I.V. [Concomitant]
     Route: 042
     Dates: end: 20150420
  36. E154 [Concomitant]
     Dosage: 500 ML DAILY;
     Route: 065
     Dates: start: 20150423
  37. BUPRENORPHINE HYDROCHLORIDE. [Concomitant]
     Active Substance: BUPRENORPHINE HYDROCHLORIDE
     Dosage: .2 MILLIGRAM DAILY; WHEN NEEDED 3 TIMES A DAY
     Route: 065
     Dates: start: 20150421
  38. ZOFRAN 8 [Concomitant]
     Dosage: 2 DOSAGE FORMS DAILY;
     Route: 042
  39. PREDNISOLUT I.V. [Concomitant]
     Dosage: 50 MILLIGRAM DAILY;
     Route: 042
     Dates: end: 20150417
  40. SANDIMMUN I.V. [Concomitant]
     Dosage: 50 MILLIGRAM DAILY;
     Route: 042
     Dates: start: 20150417, end: 20150421
  41. SANDIMMUN I.V. [Concomitant]
     Dosage: 40 MILLIGRAM DAILY; DOSE AFTER CONSULTATION 16-APR
     Route: 042
     Dates: start: 20150417, end: 20150421
  42. SANDIMMUN I.V. [Concomitant]
     Dosage: 50 MILLIGRAM DAILY; LAST DOSE AFTER CONSULTATION 28-APR
     Route: 042
     Dates: start: 20150428
  43. HEPARIN [Concomitant]
     Active Substance: HEPARIN SODIUM
     Dosage: 10000 IU (INTERNATIONAL UNIT) DAILY;
     Route: 065
     Dates: start: 20150428
  44. E75G5 [Concomitant]
     Dosage: 1000 ML DAILY; + 2 AMP MAGNESIUM/D
     Route: 065
     Dates: end: 20150422
  45. HEPARIN [Concomitant]
     Active Substance: HEPARIN SODIUM
     Dosage: 10000 IU (INTERNATIONAL UNIT) DAILY;
     Route: 065
     Dates: end: 20150420
  46. LASIX 20 I.V. [Concomitant]
     Dosage: 2 DOSAGE FORMS DAILY;
     Route: 042
     Dates: start: 20150419, end: 20150419
  47. PROCICLIDE I.V. [Concomitant]
     Route: 042
     Dates: start: 20150421, end: 20150427

REACTIONS (3)
  - Oesophagitis [Not Recovered/Not Resolved]
  - Cardiac failure [Fatal]
  - Pneumonia [Fatal]

NARRATIVE: CASE EVENT DATE: 20150413
